FAERS Safety Report 4978077-4 (Version None)
Quarter: 2006Q2

REPORT INFORMATION
  Report Type: 
  Country: None (occurrence: None)
  Receive Date: 20060417
  Receipt Date: 20060403
  Transmission Date: 20061013
  Serious: Yes (Hospitalization)
  Sender: FDA-Public Use
  Company Number: 2006PV009397

PATIENT
  Age: 64 Year
  Sex: Female
  Weight: 88.4514 kg

DRUGS (24)
  1. BYETTA [Suspect]
     Indication: DIABETES MELLITUS NON-INSULIN-DEPENDENT
     Dosage: 5 MCG;BID;SC
     Route: 058
     Dates: start: 20060207
  2. SYMLIN [Suspect]
     Indication: DIABETES MELLITUS NON-INSULIN-DEPENDENT
     Dates: start: 20051101
  3. HYZAAR [Concomitant]
  4. TOPROL-XL [Concomitant]
  5. VYTORIN [Concomitant]
  6. ALTACE [Concomitant]
  7. FOLGARD [Concomitant]
  8. LASIX [Concomitant]
  9. TRICOR [Concomitant]
  10. ISOSORBIDE MONONITRATE [Concomitant]
  11. PRILOSEC [Concomitant]
  12. CALCIUM CARBONATE [Concomitant]
  13. LANTUS [Concomitant]
  14. NOVOLOG [Concomitant]
  15. ZOLOFT [Concomitant]
  16. HUMALOG [Concomitant]
  17. COUMADIN [Concomitant]
  18. MIRAPEX [Concomitant]
  19. KLOR-CON [Concomitant]
  20. ASPIRIN [Concomitant]
  21. CALCITRAIL [Concomitant]
  22. FISH OIL [Concomitant]
  23. IRON SULFATETHIAMIN COMPOUND TAB [Concomitant]
  24. ELAVIL [Concomitant]

REACTIONS (5)
  - COUGH [None]
  - NAUSEA [None]
  - NON-CARDIAC CHEST PAIN [None]
  - PRURITUS [None]
  - RENAL FAILURE ACUTE [None]
